FAERS Safety Report 12184254 (Version 1)
Quarter: 2016Q1

REPORT INFORMATION
  Report Type: Spontaneous
  Country: US (occurrence: US)
  Receive Date: 20160316
  Receipt Date: 20160316
  Transmission Date: 20160526
  Serious: No
  Sender: FDA-Public Use
  Company Number: US-JNJFOC-20160117239

PATIENT
  Age: 76 Year
  Sex: Male
  Weight: 75.75 kg

DRUGS (3)
  1. NIZORAL A-D [Suspect]
     Active Substance: KETOCONAZOLE
     Indication: PAIN OF SKIN
     Route: 061
     Dates: start: 20160119
  2. NIZORAL A-D [Suspect]
     Active Substance: KETOCONAZOLE
     Indication: SKIN DISORDER
     Route: 061
     Dates: start: 20160119
  3. NIZORAL A-D [Suspect]
     Active Substance: KETOCONAZOLE
     Indication: HEADACHE
     Route: 061
     Dates: start: 20160119

REACTIONS (3)
  - Therapeutic response unexpected [Unknown]
  - Off label use [Unknown]
  - Product use issue [Unknown]

NARRATIVE: CASE EVENT DATE: 201601
